FAERS Safety Report 24292881 (Version 1)
Quarter: 2024Q3

REPORT INFORMATION
  Report Type: Spontaneous
  Country: US (occurrence: None)
  Receive Date: 20240906
  Receipt Date: 20240906
  Transmission Date: 20241016
  Serious: No
  Sender: DOMPE FARMACEUTICI
  Company Number: US-FARMAPROD-202310-3206

PATIENT
  Sex: Female

DRUGS (30)
  1. OXERVATE [Suspect]
     Active Substance: CENEGERMIN-BKBJ
     Indication: Neurotrophic keratopathy
     Route: 047
     Dates: start: 20231028
  2. OXERVATE [Suspect]
     Active Substance: CENEGERMIN-BKBJ
  3. DIAZEPAM [Concomitant]
     Active Substance: DIAZEPAM
  4. IMURAN [Concomitant]
     Active Substance: AZATHIOPRINE
  5. PLAQUENIL [Concomitant]
     Active Substance: HYDROXYCHLOROQUINE SULFATE
  6. ALPHAGAN P [Concomitant]
     Active Substance: BRIMONIDINE TARTRATE
  7. CEQUA [Concomitant]
     Active Substance: CYCLOSPORINE
  8. THERATEARS [Concomitant]
     Active Substance: CARBOXYMETHYLCELLULOSE SODIUM
  9. PILOCARPINE HYDROCHLORIDE [Concomitant]
     Active Substance: PILOCARPINE HYDROCHLORIDE
  10. VITAMIN D-400 [Concomitant]
  11. VITAMIN C [Concomitant]
     Active Substance: ASCORBIC ACID
  12. VITAMIN E-OIL [Concomitant]
     Dosage: 45 MG/0.25
  13. VITAMIN B12 [Concomitant]
     Active Substance: CYANOCOBALAMIN
  14. HERBALS\TURMERIC [Concomitant]
     Active Substance: HERBALS\TURMERIC
  15. CENTRUM ADULTS [Concomitant]
     Dosage: 18MG-0.4MG
  16. PROGESTERONE [Concomitant]
     Active Substance: PROGESTERONE
  17. PRILOSEC [Concomitant]
     Active Substance: OMEPRAZOLE MAGNESIUM
  18. NALTREXONE HYDROCHLORIDE [Concomitant]
     Active Substance: NALTREXONE HYDROCHLORIDE
  19. VYVANSE [Concomitant]
     Active Substance: LISDEXAMFETAMINE DIMESYLATE
  20. COLCHICINE [Concomitant]
     Active Substance: COLCHICINE
  21. ALDACTONE [Concomitant]
     Active Substance: SPIRONOLACTONE
  22. ESTRADIOL [Concomitant]
     Active Substance: ESTRADIOL
  23. DUTASTERIDE [Concomitant]
     Active Substance: DUTASTERIDE
  24. VISVISCOL [Concomitant]
  25. CALCIUM [Concomitant]
     Active Substance: CALCIUM
  26. VITAMIN D [Concomitant]
     Active Substance: VITAMIN D NOS
  27. OMEGA 3 [Concomitant]
     Active Substance: CAPSAICIN
  28. UNSPECIFIED INGREDIENT [Concomitant]
     Active Substance: UNSPECIFIED INGREDIENT
  29. BIOTIN [Concomitant]
     Active Substance: BIOTIN
  30. VITAMNIN C [Concomitant]

REACTIONS (2)
  - Wrong technique in product usage process [Unknown]
  - Inappropriate schedule of product administration [Unknown]
